FAERS Safety Report 10215834 (Version 2)
Quarter: 2014Q2

REPORT INFORMATION
  Report Type: Spontaneous
  Country: GB (occurrence: GB)
  Receive Date: 20140604
  Receipt Date: 20140616
  Transmission Date: 20141212
  Serious: Yes (Death)
  Sender: FDA-Public Use
  Company Number: PHFR2014GB003919

PATIENT
  Sex: Male

DRUGS (4)
  1. CLOZARIL [Suspect]
     Indication: SCHIZOPHRENIA, PARANOID TYPE
     Dosage: UNK
     Route: 048
     Dates: start: 20030417
  2. CLOZARIL [Suspect]
     Dosage: 300 MG (100 MG IN THE MORNING AND 200 MG AT NIIGHT)
     Route: 048
     Dates: end: 20140509
  3. DIPYRIDAMOLE [Concomitant]
     Dosage: 200 MG, DAILY
     Route: 048
  4. SIMVASTATIN [Concomitant]
     Dosage: 40 MG, DAILY
     Route: 048

REACTIONS (2)
  - Cardiovascular disorder [Fatal]
  - Cerebral haemorrhage [Fatal]
